FAERS Safety Report 4780678-3 (Version None)
Quarter: 2005Q3

REPORT INFORMATION
  Report Type: 
  Country: None (occurrence: None)
  Receive Date: 20050926
  Receipt Date: 20050913
  Transmission Date: 20060218
  Serious: Yes (Other)
  Sender: FDA-Public Use
  Company Number: B0394359B

PATIENT
  Sex: 0
  Weight: 4.0824 kg

DRUGS (2)
  1. LAMICTAL [Suspect]
     Dosage: TRANSPLACENTARY
  2. CARBAMAZEPINE [Suspect]
     Dosage: TRANSPLACENTARY

REACTIONS (4)
  - APGAR SCORE LOW [None]
  - DRUG EXPOSURE DURING PREGNANCY [None]
  - FOETAL DISTRESS SYNDROME [None]
  - FOETAL HEART RATE DECELERATION [None]
